FAERS Safety Report 16744669 (Version 2)
Quarter: 2019Q3

REPORT INFORMATION
  Report Type: Spontaneous
  Country: CN (occurrence: CN)
  Receive Date: 20190827
  Receipt Date: 20190911
  Transmission Date: 20191005
  Serious: Yes (Other)
  Sender: FDA-Public Use
  Company Number: CN-PFIZER INC-2019363647

PATIENT
  Age: 25 Year
  Sex: Male

DRUGS (5)
  1. CELEBREX [Suspect]
     Active Substance: CELECOXIB
     Indication: LUMBAR VERTEBRAL FRACTURE
     Dosage: 200 MG, SINGLE
     Route: 048
     Dates: start: 20190515, end: 20190515
  2. LAPPACONITINE HYDROBROMIDE [Concomitant]
     Indication: LUMBAR VERTEBRAL FRACTURE
     Dosage: 8 MG, 1X/DAY
     Route: 041
     Dates: start: 20190514, end: 20190523
  3. CELEBREX [Suspect]
     Active Substance: CELECOXIB
     Indication: SPINAL COMPRESSION FRACTURE
  4. SODIUM CHLORIDE. [Concomitant]
     Active Substance: SODIUM CHLORIDE
     Indication: VEHICLE SOLUTION USE
     Dosage: 250 ML, 1X/DAY
     Route: 041
     Dates: start: 20190514, end: 20190523
  5. CEREBROPROTEIN HYDROLYSATE [Concomitant]
     Active Substance: PROTEIN HYDROLYSATE
     Indication: SPINAL FRACTURE
     Dosage: 60 MG, 1X/DAY
     Route: 041
     Dates: start: 20190514, end: 20190523

REACTIONS (4)
  - Rash pruritic [Recovering/Resolving]
  - Blood pressure increased [Recovering/Resolving]
  - Flushing [Recovering/Resolving]
  - Tachypnoea [Recovering/Resolving]

NARRATIVE: CASE EVENT DATE: 20190515
